FAERS Safety Report 7301309-4 (Version None)
Quarter: 2011Q1

REPORT INFORMATION
  Report Type: 
  Country: None (occurrence: None)
  Receive Date: 20110113
  Receipt Date: 20101021
  Transmission Date: 20110831
  Serious: Yes (Hospitalization)
  Sender: FDA-Public Use
  Company Number: 017960

PATIENT
  Sex: Female
  Weight: 84.8 kg

DRUGS (5)
  1. ASPIRIN [Concomitant]
  2. NIACIN [Concomitant]
  3. LISINOPRIL [Concomitant]
  4. PAXIL [Concomitant]
  5. KEPPRA [Suspect]
     Indication: GRAND MAL CONVULSION
     Dosage: (1000 MG BID ORAL)
     Route: 048
     Dates: start: 20100629

REACTIONS (5)
  - MEMORY IMPAIRMENT [None]
  - ANXIETY [None]
  - NEUROLOGICAL SYMPTOM [None]
  - CONVULSION [None]
  - PANIC ATTACK [None]
